FAERS Safety Report 18712495 (Version 2)
Quarter: 2023Q1

REPORT INFORMATION
  Report Type: Spontaneous
  Country: GB (occurrence: GB)
  Receive Date: 20210107
  Receipt Date: 20230207
  Transmission Date: 20230417
  Serious: Yes (Hospitalization, Disabling)
  Sender: FDA-Public Use
  Company Number: GB-BAYER-2020-089828

PATIENT
  Age: 34 Year
  Sex: Male
  Weight: 96 kg

DRUGS (15)
  1. AVELOX [Suspect]
     Active Substance: MOXIFLOXACIN HYDROCHLORIDE
     Indication: Groin pain
     Dosage: 400 MG, QD
     Route: 048
     Dates: start: 20190130, end: 20190206
  2. AVELOX [Suspect]
     Active Substance: MOXIFLOXACIN HYDROCHLORIDE
     Indication: Pain in extremity
  3. AVELOX [Suspect]
     Active Substance: MOXIFLOXACIN HYDROCHLORIDE
     Indication: Pain in extremity
  4. AVELOX [Suspect]
     Active Substance: MOXIFLOXACIN HYDROCHLORIDE
     Indication: Testicular mass
  5. AVELOX [Suspect]
     Active Substance: MOXIFLOXACIN HYDROCHLORIDE
     Indication: Infection prophylaxis
  6. DOXYCYCLINE [Concomitant]
     Active Substance: DOXYCYCLINE
     Indication: Groin pain
     Dosage: UNK
     Dates: start: 201901, end: 201901
  7. DOXYCYCLINE [Concomitant]
     Active Substance: DOXYCYCLINE
     Indication: Pain in extremity
  8. TACROLIMUS [Concomitant]
     Active Substance: TACROLIMUS
     Dosage: 3.5 MG, BID
     Dates: start: 20130612, end: 20191216
  9. TACROLIMUS [Concomitant]
     Active Substance: TACROLIMUS
     Dosage: 14 MG
     Dates: start: 20130612, end: 20191216
  10. RAMIPRIL [Concomitant]
     Active Substance: RAMIPRIL
     Dosage: 5 MG
     Dates: start: 20130611
  11. RAMIPRIL [Concomitant]
     Active Substance: RAMIPRIL
     Dosage: 2.5 MG, BID
  12. RAMIPRIL [Concomitant]
     Active Substance: RAMIPRIL
     Dosage: 10 MG
     Dates: start: 20130611
  13. LACIDIPINE [Concomitant]
     Active Substance: LACIDIPINE
     Dosage: 2 MG, BID
     Dates: start: 20130611
  14. BISOPROLOL [Concomitant]
     Active Substance: BISOPROLOL
     Dosage: 2.5 MG, BID
     Dates: start: 20130611
  15. BISOPROLOL [Concomitant]
     Active Substance: BISOPROLOL
     Dosage: 3.75 MG
     Dates: start: 20130611

REACTIONS (35)
  - Adverse drug reaction [Not Recovered/Not Resolved]
  - Tinnitus [Not Recovered/Not Resolved]
  - Muscle contractions involuntary [Not Recovered/Not Resolved]
  - Rash maculo-papular [Not Recovered/Not Resolved]
  - Nightmare [Not Recovered/Not Resolved]
  - Chills [Not Recovered/Not Resolved]
  - Hyperhidrosis [Not Recovered/Not Resolved]
  - Nervous system disorder [Not Recovered/Not Resolved]
  - Feeling abnormal [Not Recovered/Not Resolved]
  - Ageusia [Not Recovered/Not Resolved]
  - Decreased appetite [Not Recovered/Not Resolved]
  - Paraesthesia [Not Recovered/Not Resolved]
  - Therapy change [None]
  - Muscle twitching [Not Recovered/Not Resolved]
  - Disturbance in attention [Not Recovered/Not Resolved]
  - Thinking abnormal [Not Recovered/Not Resolved]
  - Visual impairment [Not Recovered/Not Resolved]
  - Sensory disturbance [Not Recovered/Not Resolved]
  - Muscle twitching [Not Recovered/Not Resolved]
  - Anaesthesia [Not Recovered/Not Resolved]
  - Formication [Not Recovered/Not Resolved]
  - Arthropathy [Not Recovered/Not Resolved]
  - Tendon pain [Not Recovered/Not Resolved]
  - Fatigue [Not Recovered/Not Resolved]
  - Palpitations [Not Recovered/Not Resolved]
  - Dysgeusia [None]
  - Product use in unapproved indication [None]
  - Back pain [Not Recovered/Not Resolved]
  - Neuralgia [Not Recovered/Not Resolved]
  - Tremor [Not Recovered/Not Resolved]
  - Hypoaesthesia [Not Recovered/Not Resolved]
  - Peripheral coldness [Not Recovered/Not Resolved]
  - Tendon disorder [Not Recovered/Not Resolved]
  - Movement disorder [None]
  - Mental disorder [None]

NARRATIVE: CASE EVENT DATE: 20190130
